FAERS Safety Report 22232970 (Version 2)
Quarter: 2023Q2

REPORT INFORMATION
  Report Type: Spontaneous
  Country: ID (occurrence: ID)
  Receive Date: 20230420
  Receipt Date: 20230501
  Transmission Date: 20230722
  Serious: Yes (Hospitalization, Other)
  Sender: FDA-Public Use
  Company Number: ID-Accord-309050

PATIENT
  Age: 49 Year
  Sex: Male

DRUGS (6)
  1. OXALIPLATIN [Suspect]
     Active Substance: OXALIPLATIN
     Indication: Adenocarcinoma of colon
     Dosage: 5TH CYCLE (3 TIMES A WEEK)
  2. XELODA [Suspect]
     Active Substance: CAPECITABINE
     Indication: Adenocarcinoma of colon
     Dosage: 5TH CYCLE (3 TIMES A WEEK)
  3. OXALIPLATIN [Suspect]
     Active Substance: OXALIPLATIN
     Indication: Metastases to liver
     Dosage: 5TH CYCLE (3 TIMES A WEEK)
  4. XELODA [Suspect]
     Active Substance: CAPECITABINE
     Indication: Metastases to liver
     Dosage: 5TH CYCLE (3 TIMES A WEEK)
  5. OXALIPLATIN [Suspect]
     Active Substance: OXALIPLATIN
     Indication: Colon cancer stage IV
     Dosage: 5TH CYCLE (3 TIMES A WEEK)
  6. XELODA [Suspect]
     Active Substance: CAPECITABINE
     Indication: Colon cancer stage IV
     Dosage: 5TH CYCLE (3 TIMES A WEEK)

REACTIONS (2)
  - Acute kidney injury [Recovered/Resolved]
  - Uraemic encephalopathy [Unknown]
